FAERS Safety Report 22351438 (Version 1)
Quarter: 2023Q2

REPORT INFORMATION
  Report Type: Spontaneous
  Country: US (occurrence: None)
  Receive Date: 20230521
  Receipt Date: 20230521
  Transmission Date: 20230721
  Serious: Yes (Hospitalization)
  Sender: FDA-Public Use
  Company Number: None

PATIENT
  Age: 26 Year
  Sex: Female
  Weight: 90.72 kg

DRUGS (1)
  1. DIMETHYL FUMARATE [Suspect]
     Active Substance: DIMETHYL FUMARATE
     Dosage: 240MG PO BID?
     Route: 048
     Dates: start: 20191203

REACTIONS (2)
  - Facial paralysis [None]
  - Multiple sclerosis [None]

NARRATIVE: CASE EVENT DATE: 20230520
